FAERS Safety Report 13987902 (Version 3)
Quarter: 2018Q2

REPORT INFORMATION
  Report Type: Spontaneous
  Country: US (occurrence: US)
  Receive Date: 20170919
  Receipt Date: 20180504
  Transmission Date: 20180711
  Serious: Yes (Other)
  Sender: FDA-Public Use
  Company Number: US-PFIZER INC-2017399256

PATIENT
  Sex: Female

DRUGS (1)
  1. ESTRING [Suspect]
     Active Substance: ESTRADIOL
     Dosage: UNK

REACTIONS (8)
  - Gardnerella infection [Unknown]
  - Product size issue [Unknown]
  - Inappropriate schedule of drug administration [Unknown]
  - Vaginal discharge [Unknown]
  - Bacterial vulvovaginitis [Not Recovered/Not Resolved]
  - Fungal infection [Unknown]
  - Vulvovaginal mycotic infection [Not Recovered/Not Resolved]
  - Perineal disorder [Unknown]
